FAERS Safety Report 4600539-X (Version None)
Quarter: 2005Q1

REPORT INFORMATION
  Report Type: 
  Country: None (occurrence: None)
  Receive Date: 20050304
  Receipt Date: 20050224
  Transmission Date: 20050727
  Serious: Yes (Other)
  Sender: FDA-Public Use
  Company Number: 2005037538

PATIENT
  Age: 42 Year
  Sex: Female
  Weight: 81.6475 kg

DRUGS (4)
  1. LIPITOR [Suspect]
     Indication: CORONARY ARTERY DISEASE
     Dosage: 10 MG (10 MG, 1 IN 1 D), ORAL
     Route: 048
     Dates: start: 19990101, end: 20050201
  2. INSULIN [Concomitant]
  3. LEVOTHYROXINE SODIUM [Concomitant]
  4. CETIRIZINE HCL [Concomitant]

REACTIONS (3)
  - ASTHMA [None]
  - TENDINOUS CONTRACTURE [None]
  - TENOSYNOVITIS [None]
